FAERS Safety Report 17727727 (Version 1)
Quarter: 2020Q2

REPORT INFORMATION
  Report Type: Spontaneous
  Country: US (occurrence: US)
  Receive Date: 20200429
  Receipt Date: 20200429
  Transmission Date: 20200714
  Serious: Yes (Hospitalization)
  Sender: FDA-Public Use
  Company Number: None

PATIENT
  Age: 57 Year
  Sex: Male

DRUGS (14)
  1. BETAMETH DIP [Concomitant]
  2. TADALAFIL. [Concomitant]
     Active Substance: TADALAFIL
  3. TRESIBAFLEX [Concomitant]
  4. GABAPENTIN. [Concomitant]
     Active Substance: GABAPENTIN
  5. LOPERAMIDE [Concomitant]
     Active Substance: LOPERAMIDE
  6. XALKORI [Suspect]
     Active Substance: CRIZOTINIB
     Indication: LUNG NEOPLASM MALIGNANT
     Route: 048
     Dates: start: 20200113
  7. HUMALOG [Concomitant]
     Active Substance: INSULIN LISPRO
  8. METOPROLOL. [Concomitant]
     Active Substance: METOPROLOL
  9. ELIQUIS [Concomitant]
     Active Substance: APIXABAN
  10. METOCLOPRAM [Concomitant]
     Active Substance: METOCLOPRAMIDE
  11. OMEPRAZOLE. [Concomitant]
     Active Substance: OMEPRAZOLE
  12. ESCITALOPRAM [Concomitant]
     Active Substance: ESCITALOPRAM OXALATE
  13. ONDANSETRON [Concomitant]
     Active Substance: ONDANSETRON
  14. PREDNISONE. [Concomitant]
     Active Substance: PREDNISONE

REACTIONS (1)
  - Hospitalisation [None]

NARRATIVE: CASE EVENT DATE: 20200428
